FAERS Safety Report 9463145 (Version 2)
Quarter: 2013Q3

REPORT INFORMATION
  Report Type: Spontaneous
  Country: ES (occurrence: ES)
  Receive Date: 20130817
  Receipt Date: 20130817
  Transmission Date: 20140515
  Serious: Yes (Hospitalization, Other)
  Sender: FDA-Public Use
  Company Number: ES-ACCORD-018898

PATIENT
  Age: 83 Year
  Sex: Male

DRUGS (1)
  1. MITOMYCIN [Suspect]
     Indication: BLADDER CANCER
     Dosage: ADJUVANT TREATMENT WITH MITOMYCIN WEEKLY, FOLLOWED BY MAINTENANCE THERAPY AT DOSES OF 40 MG MONTHLY
     Route: 043

REACTIONS (5)
  - Genital ulceration [Recovered/Resolved]
  - Hypersensitivity [Recovering/Resolving]
  - Superinfection [Recovered/Resolved]
  - Oedema peripheral [Unknown]
  - Off label use [Unknown]
